FAERS Safety Report 24950185 (Version 1)
Quarter: 2025Q1

REPORT INFORMATION
  Report Type: Spontaneous
  Country: US (occurrence: US)
  Receive Date: 20250210
  Receipt Date: 20250210
  Transmission Date: 20250408
  Serious: No
  Sender: FRESENIUS KABI
  Company Number: US-FreseniusKabi-FK202501826

PATIENT
  Age: 70 Year
  Sex: Female

DRUGS (5)
  1. OCTREOTIDE [Suspect]
     Active Substance: OCTREOTIDE
     Indication: Short-bowel syndrome
  2. OCTREOTIDE [Suspect]
     Active Substance: OCTREOTIDE
     Indication: Diarrhoea
  3. MAGNESIUM [Suspect]
     Active Substance: MAGNESIUM
     Indication: Short-bowel syndrome
     Dosage: INFUSION THROUGH PORT THREE TIMES A WEEK
  4. AYVAKIT [Suspect]
     Active Substance: AVAPRITINIB
     Indication: Mastocytoma
  5. AYVAKIT [Suspect]
     Active Substance: AVAPRITINIB

REACTIONS (2)
  - Diarrhoea [Unknown]
  - Off label use [Unknown]
